FAERS Safety Report 12651803 (Version 1)
Quarter: 2016Q3

REPORT INFORMATION
  Report Type: Spontaneous
  Country: US (occurrence: US)
  Receive Date: 20160815
  Receipt Date: 20160815
  Transmission Date: 20161109
  Serious: No
  Sender: FDA-Public Use
  Company Number: US-GALDERMA-US16004240

PATIENT
  Age: 57 Year
  Sex: Female

DRUGS (6)
  1. DIFFERIN [Suspect]
     Active Substance: ADAPALENE
     Indication: ACNE CYSTIC
     Dosage: 0.3%
     Route: 061
     Dates: start: 201605
  2. DIFFERIN [Suspect]
     Active Substance: ADAPALENE
     Dosage: 0.3%
     Route: 061
     Dates: start: 2012
  3. ADAPALENE GEL, 0.3% [Suspect]
     Active Substance: ADAPALENE
     Indication: ACNE CYSTIC
     Dosage: PRASCO 0.3%
     Route: 061
     Dates: start: 201508, end: 201605
  4. DIFFERIN [Suspect]
     Active Substance: ADAPALENE
     Dosage: 0.1%
     Route: 061
     Dates: start: 1996
  5. PREMARIN (CONJUGATED ESTROGENS TABLETS, USP) [Concomitant]
     Route: 048
  6. NEUTROGENA FRESH FOAMING FACIAL CLEANSER [Concomitant]
     Indication: THERAPEUTIC SKIN CARE TOPICAL
     Route: 061

REACTIONS (3)
  - Expired product administered [Recovered/Resolved]
  - Intentional product misuse [Recovered/Resolved]
  - Drug ineffective [Recovered/Resolved]

NARRATIVE: CASE EVENT DATE: 201511
